FAERS Safety Report 4513253-6 (Version None)
Quarter: 2004Q4

REPORT INFORMATION
  Report Type: 
  Country: None (occurrence: None)
  Receive Date: 20041124
  Receipt Date: 20041115
  Transmission Date: 20050328
  Serious: Yes (Other)
  Sender: FDA-Public Use
  Company Number: BEWYE184708NOV04

PATIENT
  Age: 83 Year
  Sex: Female

DRUGS (6)
  1. EFFEXOR XR [Suspect]
     Indication: DEPRESSION
     Dosage: 75 MG 1X PER DAY
     Route: 048
     Dates: start: 20040706, end: 20040924
  2. ASPIRIN [Concomitant]
  3. TILDIEM - SLOW RELEASE (DILTIAZEM HYDROCHLORIDE) [Concomitant]
  4. IBEXONE (DIHYDROERGOTOXINE MESILATE) [Concomitant]
  5. RANITIDINE [Concomitant]
  6. ORTHO-GYNEST (ESTRIOL) [Concomitant]

REACTIONS (5)
  - BLOOD ACID PHOSPHATASE INCREASED [None]
  - HEPATITIS TOXIC [None]
  - LIPASE INCREASED [None]
  - RED BLOOD CELL SEDIMENTATION RATE INCREASED [None]
  - SERUM FERRITIN INCREASED [None]
